FAERS Safety Report 13636841 (Version 1)
Quarter: 2017Q2

REPORT INFORMATION
  Report Type: Spontaneous
  Country: US (occurrence: US)
  Receive Date: 20170531
  Receipt Date: 20170531
  Transmission Date: 20170830
  Serious: No
  Sender: FDA-Public Use
  Company Number: US-ASTELLAS-1855891

PATIENT
  Sex: Female
  Weight: 55.12 kg

DRUGS (1)
  1. TARCEVA [Suspect]
     Active Substance: ERLOTINIB HYDROCHLORIDE
     Indication: LUNG NEOPLASM MALIGNANT
     Dosage: 150 MG-30
     Route: 048
     Dates: start: 20160917, end: 20161122

REACTIONS (4)
  - Asthenia [Unknown]
  - Chest pain [Unknown]
  - Headache [Unknown]
  - Fall [Unknown]
